FAERS Safety Report 15682156 (Version 3)
Quarter: 2019Q2

REPORT INFORMATION
  Report Type: Spontaneous
  Country: US (occurrence: US)
  Receive Date: 20181203
  Receipt Date: 20190628
  Transmission Date: 20190711
  Serious: Yes (Hospitalization)
  Sender: FDA-Public Use
  Company Number: US-VIFOR (INTERNATIONAL) INC.-VIT-2018-11597

PATIENT
  Age: 60 Year
  Sex: Male

DRUGS (11)
  1. ISOSORBIDE DINITRATE. [Concomitant]
     Active Substance: ISOSORBIDE DINITRATE
  2. ASPIRIN 81 [Concomitant]
     Active Substance: ASPIRIN
  3. VELTASSA [Suspect]
     Active Substance: PATIROMER
     Indication: HYPERKALAEMIA
     Route: 048
     Dates: start: 20180821, end: 201903
  4. FUROSEMIDE. [Concomitant]
     Active Substance: FUROSEMIDE
  5. CLONIDINE HCL [Concomitant]
     Active Substance: CLONIDINE HYDROCHLORIDE
  6. SENSIPAR [Concomitant]
     Active Substance: CINACALCET HYDROCHLORIDE
  7. FISH OIL OMEGA 3 [Concomitant]
     Active Substance: FISH OIL
  8. HYDRALAZINE HCL [Concomitant]
     Active Substance: HYDRALAZINE HYDROCHLORIDE
  9. VALSARTAN. [Concomitant]
     Active Substance: VALSARTAN
  10. RENVELA [Concomitant]
     Active Substance: SEVELAMER CARBONATE
  11. COREG [Concomitant]
     Active Substance: CARVEDILOL

REACTIONS (5)
  - Hyperkalaemia [Unknown]
  - Adverse drug reaction [Unknown]
  - Pneumonia [Unknown]
  - Dyspnoea [Unknown]
  - Hospitalisation [Unknown]

NARRATIVE: CASE EVENT DATE: 2018
